FAERS Safety Report 15132577 (Version 1)
Quarter: 2018Q3

REPORT INFORMATION
  Report Type: Report from Study
  Country: None (occurrence: BR)
  Receive Date: 20180712
  Receipt Date: 20180712
  Transmission Date: 20181010
  Serious: Yes (Other)
  Sender: FDA-Public Use
  Company Number: BR-ABBVIE-18K-020-2414455-00

PATIENT
  Age: 62 Year
  Sex: Female
  Weight: 76 kg

DRUGS (7)
  1. GALVUS MET [Concomitant]
     Active Substance: METFORMIN HYDROCHLORIDE\VILDAGLIPTIN
     Indication: DIABETES MELLITUS
     Dosage: 50/850
  2. HUMIRA [Suspect]
     Active Substance: ADALIMUMAB
     Dosage: LOADING DOSE??WEEK 1
     Route: 058
     Dates: start: 2017, end: 2017
  3. NORIPURUM [Concomitant]
     Active Substance: IRON POLYMALTOSE
     Indication: ANAEMIA
  4. ATACAND [Concomitant]
     Active Substance: CANDESARTAN CILEXETIL
     Indication: BLOOD PRESSURE MEASUREMENT
     Dosage: 16/12.5
  5. PRESSAT [Concomitant]
     Active Substance: AMLODIPINE BESYLATE
     Indication: BLOOD PRESSURE MEASUREMENT
  6. HUMIRA [Suspect]
     Active Substance: ADALIMUMAB
     Route: 058
     Dates: end: 20171220
  7. HUMIRA [Suspect]
     Active Substance: ADALIMUMAB
     Indication: CROHN^S DISEASE
     Dosage: LOADING DOSE?WEEK 0
     Route: 058
     Dates: start: 20171011, end: 20171011

REACTIONS (6)
  - Toxoplasmosis [Recovering/Resolving]
  - Skin wound [Not Recovered/Not Resolved]
  - Alopecia [Recovered/Resolved]
  - Retinal disorder [Recovering/Resolving]
  - Immunodeficiency [Recovered/Resolved]
  - Weight increased [Recovering/Resolving]

NARRATIVE: CASE EVENT DATE: 201712
